FAERS Safety Report 7384557-7 (Version None)
Quarter: 2011Q1

REPORT INFORMATION
  Report Type: 
  Country: None (occurrence: None)
  Receive Date: 20110330
  Receipt Date: 20110321
  Transmission Date: 20110831
  Serious: Yes (Other)
  Sender: FDA-Public Use
  Company Number: US-ASTRAZENECA-2011SE15992

PATIENT
  Age: 46 Year
  Sex: Female
  Weight: 113.4 kg

DRUGS (35)
  1. ELAVIL [Concomitant]
  2. BACLOFEN [Concomitant]
  3. QVAR 40 [Concomitant]
     Indication: DYSPNOEA
     Dosage: 80 MCG, TWO PUFFS TWO TIMES A DAY
  4. CHANTIX [Suspect]
     Indication: SMOKING CESSATION THERAPY
     Route: 048
     Dates: start: 20080101
  5. KLONOPIN [Concomitant]
     Indication: ABDOMINAL DISCOMFORT
  6. CHANTIX [Suspect]
     Route: 048
  7. CHANTIX [Suspect]
     Route: 048
     Dates: start: 20110201
  8. WELLBUTRIN [Concomitant]
     Indication: DEPRESSION
  9. PREMARIN [Concomitant]
  10. ROBAXIN [Concomitant]
  11. VOLTAREN [Concomitant]
  12. NEURONTIN [Concomitant]
  13. SPIRIVA [Concomitant]
     Indication: CHRONIC OBSTRUCTIVE PULMONARY DISEASE
     Dosage: ONE PUFF DAILY
  14. DICLOFENAC [Concomitant]
  15. VISTARIL [Concomitant]
  16. PREMPRO [Concomitant]
  17. VICODIN [Concomitant]
     Indication: PAIN
     Dosage: 7.5/325 MG AS NEEDED
  18. NEXIUM [Suspect]
     Indication: GASTROOESOPHAGEAL REFLUX DISEASE
     Route: 048
  19. NEXIUM [Suspect]
     Route: 048
  20. BUSPAR [Concomitant]
  21. INTERFERON BETA-1A [Concomitant]
  22. ZANTAC [Concomitant]
     Indication: GASTROOESOPHAGEAL REFLUX DISEASE
  23. SPIRONOLACTONE [Concomitant]
  24. ADVAIR DISKUS 100/50 [Concomitant]
  25. SINGULAIR [Concomitant]
     Indication: CHRONIC OBSTRUCTIVE PULMONARY DISEASE
  26. TRAZODONE [Concomitant]
     Indication: SLEEP DISORDER
  27. PROAIR HFA [Concomitant]
  28. OXYCODONE [Concomitant]
     Indication: PAIN
  29. CHANTIX [Suspect]
     Route: 048
     Dates: start: 20090101, end: 20090101
  30. CELEXA [Concomitant]
     Indication: DEPRESSION
  31. NUVIGIL [Concomitant]
  32. CHANTIX [Suspect]
     Route: 048
     Dates: start: 20090321, end: 20090321
  33. ALBUTEROL [Concomitant]
     Dosage: TWO PUFFS EVERY FOUR HOURS
  34. LYRICA [Concomitant]
     Indication: NEUROPATHY PERIPHERAL
  35. OXYBUTYNIN [Concomitant]
     Indication: HYPERTONIC BLADDER

REACTIONS (4)
  - SPINAL DISORDER [None]
  - THERMAL BURN [None]
  - ROTATOR CUFF SYNDROME [None]
  - MULTIPLE SCLEROSIS RELAPSE [None]
